FAERS Safety Report 9747450 (Version 1)
Quarter: 2013Q4

REPORT INFORMATION
  Report Type: Spontaneous
  Country: CA (occurrence: CA)
  Receive Date: 20131212
  Receipt Date: 20131212
  Transmission Date: 20140711
  Serious: Yes (Hospitalization)
  Sender: FDA-Public Use
  Company Number: CA-BIOGENIDEC-2013BI116767

PATIENT
  Age: 25 Year
  Sex: Female

DRUGS (1)
  1. TECFIDERA [Suspect]
     Indication: MULTIPLE SCLEROSIS
     Route: 048
     Dates: start: 20131028

REACTIONS (10)
  - Convulsion [Recovered/Resolved]
  - Disorientation [Recovered/Resolved]
  - Confusional state [Recovered/Resolved]
  - Eye movement disorder [Not Recovered/Not Resolved]
  - Diplopia [Not Recovered/Not Resolved]
  - Reading disorder [Recovered/Resolved]
  - Loss of consciousness [Recovered/Resolved]
  - Hypoaesthesia [Not Recovered/Not Resolved]
  - Nausea [Recovered/Resolved]
  - Speech disorder [Unknown]
